FAERS Safety Report 25175045 (Version 1)
Quarter: 2025Q2

REPORT INFORMATION
  Report Type: Spontaneous
  Country: GB (occurrence: GB)
  Receive Date: 20250408
  Receipt Date: 20250408
  Transmission Date: 20250716
  Serious: Yes (Other)
  Sender: ELI LILLY AND CO
  Company Number: None

PATIENT
  Age: 10 Year
  Sex: Female
  Weight: 103 kg

DRUGS (2)
  1. MOUNJARO [Suspect]
     Active Substance: TIRZEPATIDE
     Indication: Weight control
     Dosage: 2.5 MG, WEEKLY (1/W)
     Route: 065
     Dates: start: 20250303, end: 20250319
  2. DULOXETINE [Concomitant]
     Active Substance: DULOXETINE
     Indication: Mixed anxiety and depressive disorder

REACTIONS (2)
  - Depression [Recovering/Resolving]
  - Off label use [Unknown]
